FAERS Safety Report 9553178 (Version 1)
Quarter: 2013Q2

REPORT INFORMATION
  Report Type: Spontaneous
  Country: US (occurrence: None)
  Receive Date: 20130507
  Receipt Date: 20130507
  Transmission Date: 20140414
  Serious: Yes (Hospitalization)
  Sender: FDA-Public Use
  Company Number: PHEH2012US010724

PATIENT
  Age: 82 Year
  Sex: Male

DRUGS (1)
  1. TASIGNA (AMN107) CAPSULE [Suspect]
     Route: 048

REACTIONS (3)
  - Pneumonia [None]
  - Fatigue [None]
  - Laziness [None]
